FAERS Safety Report 22256066 (Version 1)
Quarter: 2023Q2

REPORT INFORMATION
  Report Type: Spontaneous
  Country: US (occurrence: US)
  Receive Date: 20230426
  Receipt Date: 20230426
  Transmission Date: 20230721
  Serious: No
  Sender: FDA-Public Use
  Company Number: US-ABBVIE-4742531

PATIENT
  Sex: Female

DRUGS (2)
  1. VENCLEXTA [Suspect]
     Active Substance: VENETOCLAX
     Indication: Chronic lymphocytic leukaemia
     Route: 048
  2. MUCINEX [Concomitant]
     Active Substance: GUAIFENESIN
     Indication: Product used for unknown indication
     Route: 048

REACTIONS (8)
  - Pulmonary mass [Unknown]
  - Nasopharyngitis [Unknown]
  - Dyspnoea [Unknown]
  - Insomnia [Unknown]
  - Illness [Unknown]
  - Choking [Unknown]
  - Retching [Unknown]
  - Nausea [Unknown]
